FAERS Safety Report 9153778 (Version 2)
Quarter: 2013Q2

REPORT INFORMATION
  Report Type: Spontaneous
  Country: US (occurrence: US)
  Receive Date: 20130311
  Receipt Date: 20130412
  Transmission Date: 20140414
  Serious: No
  Sender: FDA-Public Use
  Company Number: US-JNJFOC-20130203779

PATIENT
  Sex: Male

DRUGS (2)
  1. INVEGA SUSTENNA [Suspect]
     Indication: PRODUCT USED FOR UNKNOWN INDICATION
     Route: 030
     Dates: start: 20130201
  2. PROLIXIN [Concomitant]

REACTIONS (1)
  - Drug ineffective [Not Recovered/Not Resolved]
